FAERS Safety Report 23034928 (Version 6)
Quarter: 2024Q2

REPORT INFORMATION
  Report Type: Spontaneous
  Country: US (occurrence: US)
  Receive Date: 20231005
  Receipt Date: 20240610
  Transmission Date: 20240716
  Serious: No
  Sender: FDA-Public Use
  Company Number: US-PFIZER INC-202300314561

PATIENT
  Age: 77 Year
  Sex: Female
  Weight: 68.49 kg

DRUGS (7)
  1. IBRANCE [Suspect]
     Active Substance: PALBOCICLIB
     Indication: Neoplasm malignant
     Dosage: 125MG ONE TABLET ONCE A DAY FOR 21 DAYS ON AND 7 DAYS OFF
     Route: 048
  2. METOPROLOL [Concomitant]
     Active Substance: METOPROLOL
     Indication: Blood pressure measurement
     Dosage: 25MG TABLET ONE IN THE MORNING AND ONE IN THE AFTERNOON
  3. PRAVASTATIN [Concomitant]
     Active Substance: PRAVASTATIN
     Indication: Blood cholesterol abnormal
     Dosage: 10/40MG TABLET ONE AT BEDTIME
  4. OMEPRAZOLE [Concomitant]
     Active Substance: DONEPEZIL HYDROCHLORIDE\OMEPRAZOLE\OMEPRAZOLE MAGNESIUM
     Dosage: 20MG CAPSULE ONE DAILY
  5. LETROZOLE [Concomitant]
     Active Substance: LETROZOLE
     Dosage: 2.5MG TABLET ONCE IN THE MORNING
  6. CHOLECALCIFEROL [Concomitant]
     Active Substance: CHOLECALCIFEROL
     Dosage: 1000 UNITS CAPSULE ONCE IN THE MORNING
  7. BUPROPION [Concomitant]
     Active Substance: BUPROPION
     Dosage: 75MG TABLET ONE AT BEDTIME

REACTIONS (4)
  - Visual impairment [Unknown]
  - Product packaging quantity issue [Unknown]
  - Product dose omission issue [Unknown]
  - White blood cell count decreased [Unknown]

NARRATIVE: CASE EVENT DATE: 20230929
